FAERS Safety Report 23964471 (Version 6)
Quarter: 2024Q3

REPORT INFORMATION
  Report Type: Report from Study
  Country: CH (occurrence: CH)
  Receive Date: 20240611
  Receipt Date: 20240808
  Transmission Date: 20241016
  Serious: Yes (Hospitalization)
  Sender: ABBVIE
  Company Number: CH-ABBVIE-5796246

PATIENT
  Sex: Male

DRUGS (6)
  1. CARBIDOPA\LEVODOPA [Suspect]
     Active Substance: CARBIDOPA\LEVODOPA
     Indication: Parkinson^s disease
     Route: 050
     Dates: start: 20231114
  2. CARBIDOPA\LEVODOPA [Suspect]
     Active Substance: CARBIDOPA\LEVODOPA
     Dosage: MD: 7.0 ML, CRD: 4.8 ML/H, CRN: 3.3 ML/H, ED: 1.0 ML?FREQUENCY TEXT: 24H THERAPY
     Route: 050
     Dates: start: 20240406, end: 20240506
  3. CARBIDOPA\LEVODOPA [Suspect]
     Active Substance: CARBIDOPA\LEVODOPA
     Dosage: MD: 7.0 ML, CRD: 4.7 ML/H, CRN: 3.2 ML/H, ED: 1.0 ML?FREQUENCY TEXT: 24H THERAPY
     Route: 050
     Dates: start: 20240104, end: 20240405
  4. CARBIDOPA\LEVODOPA [Suspect]
     Active Substance: CARBIDOPA\LEVODOPA
     Dosage: MD: 7.0 ML, CRD: 4.7 ML/H, CRN: 3.4 ML/H, ED: 1.0 ML?FREQUENCY TEXT: 24H THERAPY,?LAST ADMIN DATE...
     Route: 050
     Dates: start: 20240507
  5. CARBIDOPA\LEVODOPA [Suspect]
     Active Substance: CARBIDOPA\LEVODOPA
     Dosage: MD: 7.0 ML, CRD: 4.7 ML/H, CRN: 3.5 ML/H, ED: 1.0 ML,?FREQUENCY TEXT: 24H THERAPY
     Route: 050
     Dates: start: 20240802
  6. CARBIDOPA\LEVODOPA [Suspect]
     Active Substance: CARBIDOPA\LEVODOPA
     Dosage: MD: 7.0 ML, CRD: 4.7 ML/H, CRN: 3.5 ML/H, ED: 1.0 ML?FREQUENCY TEXT: 24H THERAPY
     Route: 050
     Dates: start: 20240607, end: 20240801

REACTIONS (9)
  - Cerebrovascular accident [Unknown]
  - Muscular weakness [Not Recovered/Not Resolved]
  - Stoma site hypergranulation [Recovered/Resolved]
  - Loss of consciousness [Recovered/Resolved]
  - Amnesia [Recovering/Resolving]
  - Freezing phenomenon [Recovering/Resolving]
  - Aphasia [Not Recovered/Not Resolved]
  - Dizziness [Not Recovered/Not Resolved]
  - Stoma site discharge [Not Recovered/Not Resolved]

NARRATIVE: CASE EVENT DATE: 20240101
